FAERS Safety Report 25593193 (Version 2)
Quarter: 2025Q3

REPORT INFORMATION
  Report Type: Spontaneous
  Country: US (occurrence: US)
  Receive Date: 20250722
  Receipt Date: 20250813
  Transmission Date: 20251020
  Serious: Yes (Hospitalization, Other)
  Sender: SAREPTA THERAPEUTICS
  Company Number: US-SAREPTA THERAPEUTICS INC.-SRP2025-006217

PATIENT
  Age: 18 Year
  Sex: Male
  Weight: 76.19 kg

DRUGS (2)
  1. AMONDYS 45 [Suspect]
     Active Substance: CASIMERSEN
     Indication: Muscular dystrophy
     Route: 042
     Dates: start: 20220225, end: 20250627
  2. PREDNISONE [Concomitant]
     Active Substance: PREDNISONE
     Indication: Product used for unknown indication

REACTIONS (7)
  - Acute respiratory failure [Unknown]
  - Fall [Unknown]
  - Pneumonia [Unknown]
  - Sepsis [Unknown]
  - Shoulder fracture [Unknown]
  - Lower limb fracture [Unknown]
  - Cyanosis [Unknown]

NARRATIVE: CASE EVENT DATE: 20250601
